FAERS Safety Report 6697703-5 (Version None)
Quarter: 2010Q2

REPORT INFORMATION
  Report Type: 
  Country: None (occurrence: None)
  Receive Date: 20100423
  Receipt Date: 20100409
  Transmission Date: 20101027
  Serious: Yes (Other)
  Sender: FDA-Public Use
  Company Number: 230094M10USA

PATIENT
  Age: 58 Year
  Sex: Male

DRUGS (10)
  1. REBIF [Suspect]
     Indication: MULTIPLE SCLEROSIS
     Dosage: 3 IN 1 WK, SUBCUTANEOUS, 44 MCG, SUBCUTANEOUS
     Route: 058
     Dates: start: 20090901, end: 20090101
  2. REBIF [Suspect]
     Indication: MULTIPLE SCLEROSIS
     Dosage: 3 IN 1 WK, SUBCUTANEOUS, 44 MCG, SUBCUTANEOUS
     Route: 058
     Dates: start: 20100101, end: 20100401
  3. ASPIRIN [Concomitant]
  4. NIACIN [Concomitant]
  5. GLUCOSAMINE/CHONDOROITIN SULPHATE (JORIX) [Concomitant]
  6. VITAMIN D [Concomitant]
  7. MULTIVITAMIN (MULTIVITAMIN) [Concomitant]
  8. FISH OIL (FISH OIL) [Concomitant]
  9. FLAX SEED (LINUM USITATISSIMUM SEED OIL) [Concomitant]
  10. BACLOFEN [Concomitant]

REACTIONS (2)
  - MITRAL VALVE PROLAPSE [None]
  - VENTRICULAR EXTRASYSTOLES [None]
